FAERS Safety Report 8591306 (Version 2)
Quarter: 2012Q4

REPORT INFORMATION
  Report Type: 
  Country: MX (occurrence: MX)
  Receive Date: 20120601
  Receipt Date: 20121226
  Transmission Date: 20130627
  Serious: Yes (Hospitalization, Other)
  Sender: FDA-Public Use
  Company Number: PHHY2012MX046300

PATIENT
  Age: 80 Year
  Sex: Female

DRUGS (8)
  1. DIOVAN [Suspect]
     Indication: HYPERTENSION
     Dosage: 1.5 DF (320 mg), daily
     Route: 048
     Dates: start: 20120607, end: 20121120
  2. TENORETIC [Concomitant]
     Indication: HYPERTENSION
     Dosage: UNK UKN, QD
  3. SOTOPER [Concomitant]
     Dosage: 160 UKN, daily
  4. INHIBITRON [Concomitant]
     Indication: GASTRITIS
     Dosage: UNK UKN, QD
  5. MODURETIC [Concomitant]
     Indication: DIURETIC THERAPY
     Dosage: UNK UKN, QD
  6. KARET [Concomitant]
     Indication: THYROID DISORDER
     Dosage: UNK UKN, QD
  7. ANAPSIQUE [Concomitant]
     Dosage: 1 UKN, daily
  8. SOPADOR [Concomitant]

REACTIONS (8)
  - Adenoma benign [Unknown]
  - Fall [Not Recovered/Not Resolved]
  - Lower limb fracture [Not Recovered/Not Resolved]
  - Limb injury [Not Recovered/Not Resolved]
  - Ligament rupture [Not Recovered/Not Resolved]
  - Haemoglobin decreased [Not Recovered/Not Resolved]
  - Blood pressure decreased [Not Recovered/Not Resolved]
  - Wrong technique in drug usage process [Unknown]
